FAERS Safety Report 21959511 (Version 1)
Quarter: 2023Q1

REPORT INFORMATION
  Report Type: Spontaneous
  Country: GB (occurrence: GB)
  Receive Date: 20230206
  Receipt Date: 20230206
  Transmission Date: 20230417
  Serious: Yes (Other)
  Sender: FDA-Public Use
  Company Number: GB-MHRA-MED-202301311353206630-GRHZQ

PATIENT
  Age: 82 Year

DRUGS (1)
  1. LANSOPRAZOLE [Suspect]
     Active Substance: LANSOPRAZOLE
     Indication: Cough
     Dosage: 30 MILLIGRAM, QD (30MG OD)
     Route: 065
     Dates: start: 20201117, end: 202301

REACTIONS (5)
  - Urinary retention [Recovered/Resolved]
  - Dry mouth [Recovered/Resolved]
  - Insomnia [Recovered/Resolved]
  - Abdominal discomfort [Recovered/Resolved]
  - Off label use [Unknown]

NARRATIVE: CASE EVENT DATE: 20201117
